FAERS Safety Report 9815868 (Version 13)
Quarter: 2016Q2

REPORT INFORMATION
  Report Type: Report from Study
  Country: US (occurrence: US)
  Receive Date: 20140114
  Receipt Date: 20160411
  Transmission Date: 20160815
  Serious: Yes (Hospitalization, Other)
  Sender: FDA-Public Use
  Company Number: US-SA-2014SA002504

PATIENT
  Age: 64 Year
  Sex: Male
  Weight: 195 kg

DRUGS (6)
  1. AUBAGIO [Suspect]
     Active Substance: TERIFLUNOMIDE
     Indication: MULTIPLE SCLEROSIS RELAPSE
     Route: 048
     Dates: start: 20131010, end: 20140107
  2. AUBAGIO [Suspect]
     Active Substance: TERIFLUNOMIDE
     Indication: MULTIPLE SCLEROSIS RELAPSE
     Route: 048
  3. AMLODIPINE [Concomitant]
     Active Substance: AMLODIPINE BESYLATE
     Indication: HYPERTENSION
     Dates: start: 1995
  4. NAPROXEN. [Concomitant]
     Active Substance: NAPROXEN
  5. METHYLPREDNISOLONE. [Concomitant]
     Active Substance: METHYLPREDNISOLONE
     Route: 042
  6. ACETAMINOPHEN. [Concomitant]
     Active Substance: ACETAMINOPHEN

REACTIONS (33)
  - Kidney infection [Unknown]
  - Muscular weakness [Not Recovered/Not Resolved]
  - Drug dose omission [Unknown]
  - Unevaluable event [Unknown]
  - Drug ineffective [Unknown]
  - Multiple sclerosis relapse [Recovering/Resolving]
  - Muscle spasticity [Recovering/Resolving]
  - Multiple sclerosis relapse [Unknown]
  - Infection [Recovering/Resolving]
  - Visual acuity reduced [Unknown]
  - Extraocular muscle paresis [Unknown]
  - Feeling jittery [Unknown]
  - Nephrolithiasis [Unknown]
  - Loss of consciousness [Unknown]
  - Balance disorder [Recovering/Resolving]
  - Exercise tolerance decreased [Recovering/Resolving]
  - Asthenia [Unknown]
  - Urinary tract infection [Unknown]
  - Fungal infection [Unknown]
  - Gait disturbance [Unknown]
  - Paraesthesia [Recovering/Resolving]
  - Anxiety [Recovering/Resolving]
  - Band sensation [Unknown]
  - Chest discomfort [Unknown]
  - Dysstasia [Unknown]
  - Multiple sclerosis [Unknown]
  - Fatigue [Unknown]
  - Pain [Recovering/Resolving]
  - Hypoaesthesia [Unknown]
  - Cystitis [Recovering/Resolving]
  - Hypoaesthesia [Recovering/Resolving]
  - Pain [Unknown]
  - Hypertension [Unknown]

NARRATIVE: CASE EVENT DATE: 20140107
